FAERS Safety Report 5713642-8 (Version None)
Quarter: 2008Q2

REPORT INFORMATION
  Report Type: 
  Country: None (occurrence: None)
  Receive Date: 20080422
  Receipt Date: 20080414
  Transmission Date: 20081010
  Serious: Yes (Other)
  Sender: FDA-Public Use
  Company Number: US-MERCK-0803USA03009

PATIENT
  Age: 52 Year
  Sex: Female
  Weight: 69 kg

DRUGS (6)
  1. ZOCOR [Suspect]
     Indication: BLOOD CHOLESTEROL INCREASED
     Route: 048
     Dates: start: 20050101, end: 20070101
  2. GLUCOPHAGE [Concomitant]
     Route: 065
  3. LASIX [Concomitant]
     Route: 065
  4. POTASSIUM (UNSPECIFIED) [Concomitant]
     Route: 065
  5. [THERAPY UNSPECIFIED] [Concomitant]
     Route: 065
  6. ASPIRIN [Concomitant]
     Route: 065

REACTIONS (1)
  - ANGIOEDEMA [None]
